FAERS Safety Report 26198492 (Version 1)
Quarter: 2025Q4

REPORT INFORMATION
  Report Type: Spontaneous
  Country: IN (occurrence: IN)
  Receive Date: 20251224
  Receipt Date: 20251224
  Transmission Date: 20260117
  Serious: Yes (Death, Other)
  Sender: B. BRAUN MEDICAL INC.
  Company Number: IN-B. Braun Medical Inc.-IN-BBM-202504867

PATIENT
  Sex: Male

DRUGS (4)
  1. DEXTROSE [Suspect]
     Active Substance: DEXTROSE MONOHYDRATE
     Indication: Hyperinsulinaemia
     Dosage: INFUSION RATE (GIR) OF 20 MG/KG/MIN WITH A HIGHER CONCENTRATION OF DEXTROSE TO A MAXIMUM OF 25%;?HIGH-CONCENTRATION GLUCOSE INFUSIONS VIA UMBILICAL VENOUS CATHETERS
  2. DEXTROSE [Suspect]
     Active Substance: DEXTROSE MONOHYDRATE
     Indication: Hypoglycaemia
  3. DIAZOXIDE [Concomitant]
     Active Substance: DIAZOXIDE
     Dosage: MAXIMUM DOSE UP TO 15 MG/KG/DAY
  4. OCTREOTIDE [Concomitant]
     Active Substance: OCTREOTIDE
     Dosage: UP TO 20 ?G/KG/DAY

REACTIONS (1)
  - Atrial thrombosis [Fatal]
